FAERS Safety Report 17433122 (Version 4)
Quarter: 2021Q1

REPORT INFORMATION
  Report Type: Report from Study
  Country: US (occurrence: US)
  Receive Date: 20200219
  Receipt Date: 20210309
  Transmission Date: 20210419
  Serious: Yes (Death, Hospitalization)
  Sender: FDA-Public Use
  Company Number: US-ROCHE-2536180

PATIENT
  Age: 63 Year
  Sex: Female
  Weight: 51.52 kg

DRUGS (8)
  1. FUROSEMIDE. [Concomitant]
     Active Substance: FUROSEMIDE
  2. SODIUM CHLORIDE. [Concomitant]
     Active Substance: SODIUM CHLORIDE
  3. IBUPROFEN. [Concomitant]
     Active Substance: IBUPROFEN
  4. PROCHLORPERAZINE MALEATE. [Concomitant]
     Active Substance: PROCHLORPERAZINE MALEATE
  5. XL184 [Suspect]
     Active Substance: CABOZANTINIB
     Indication: ENDOMETRIAL CANCER
     Dosage: MOST RECENT DOSE OF CABOZANTINIB PRIOR TO THE EVENT ONSET 12/NOV2019, 13/NOV/2019
     Route: 041
     Dates: start: 20191022
  6. AMLODIPINE BESYLATE. [Concomitant]
     Active Substance: AMLODIPINE BESYLATE
  7. ATEZOLIZUMAB. [Suspect]
     Active Substance: ATEZOLIZUMAB
     Indication: ENDOMETRIAL CANCER
     Dosage: MOST RECENT DOSE OF ATEZOLIZUMAB PRIOR TO THE EVENT ONSET: 22/OCT/2019, /NOV/2019
     Route: 042
     Dates: start: 20191022
  8. PREDNISONE. [Concomitant]
     Active Substance: PREDNISONE

REACTIONS (3)
  - Disease progression [Fatal]
  - Liver function test increased [Not Recovered/Not Resolved]
  - Ascites [Not Recovered/Not Resolved]

NARRATIVE: CASE EVENT DATE: 20191113
